FAERS Safety Report 8338857-4 (Version None)
Quarter: 2012Q2

REPORT INFORMATION
  Report Type: 
  Country: None (occurrence: None)
  Receive Date: 20120504
  Receipt Date: 20120427
  Transmission Date: 20120825
  Serious: Yes (Other)
  Sender: FDA-Public Use
  Company Number: US-RB-039821-12

PATIENT
  Sex: Male
  Weight: 1.844 kg

DRUGS (6)
  1. BUPRENORPHINE [Suspect]
     Indication: DRUG DEPENDENCE
     Route: 064
     Dates: start: 20110808, end: 20120322
  2. MULTI-VITAMINS [Suspect]
     Indication: MATERNAL EXPOSURE DURING PREGNANCY
     Dosage: DOSING DETAILS NOT PROVIDED; 1ST TRIMESTER
     Route: 064
  3. SUBOXONE [Suspect]
     Indication: DRUG DEPENDENCE
     Route: 064
     Dates: start: 20110706, end: 20110807
  4. VITAMIN D [Suspect]
     Indication: PRODUCT USED FOR UNKNOWN INDICATION
     Route: 064
     Dates: start: 20110101
  5. CALCIUM [Suspect]
     Indication: MATERNAL EXPOSURE DURING PREGNANCY
     Dosage: 1ST TRIMESTER
     Route: 064
  6. LEVOTHYROXINE SODIUM [Suspect]
     Indication: HYPOTHYROIDISM
     Route: 064

REACTIONS (3)
  - PREMATURE DELIVERY [None]
  - FOETAL EXPOSURE DURING PREGNANCY [None]
  - LOW BIRTH WEIGHT BABY [None]
